FAERS Safety Report 5826793-4 (Version None)
Quarter: 2008Q3

REPORT INFORMATION
  Report Type: 
  Country: None (occurrence: None)
  Receive Date: 20080730
  Receipt Date: 20080522
  Transmission Date: 20090109
  Serious: No
  Sender: FDA-Public Use
  Company Number: A0730215A

PATIENT
  Age: 5 Year
  Sex: Male

DRUGS (1)
  1. FLOVENT [Suspect]
     Dosage: 2PUFF TWICE PER DAY
     Route: 055

REACTIONS (2)
  - INCONTINENCE [None]
  - POLLAKIURIA [None]
